FAERS Safety Report 15044926 (Version 1)
Quarter: 2018Q2

REPORT INFORMATION
  Report Type: Report from Study
  Country: ES (occurrence: ES)
  Receive Date: 20180621
  Receipt Date: 20180621
  Transmission Date: 20180711
  Serious: Yes (Hospitalization, Other)
  Sender: FDA-Public Use
  Company Number: ES-PFIZER INC-2018249445

PATIENT
  Sex: Male
  Weight: 3.4 kg

DRUGS (1)
  1. BESITRAN [Suspect]
     Active Substance: SERTRALINE HYDROCHLORIDE
     Dosage: UNK
     Route: 064
     Dates: start: 2015

REACTIONS (3)
  - Drug withdrawal syndrome neonatal [Recovered/Resolved]
  - Exposure during pregnancy [Unknown]
  - Agitation neonatal [Recovered/Resolved]

NARRATIVE: CASE EVENT DATE: 2015
